FAERS Safety Report 18696536 (Version 1)
Quarter: 2021Q1

REPORT INFORMATION
  Report Type: Other
  Country: US (occurrence: US)
  Receive Date: 20210104
  Receipt Date: 20210104
  Transmission Date: 20210419
  Serious: No
  Sender: FDA-Public Use
  Company Number: US-ROCHE-2587990

PATIENT
  Age: 27 Year
  Sex: Male

DRUGS (4)
  1. WARFARIN [Concomitant]
     Active Substance: WARFARIN
  2. HEPARIN [Concomitant]
     Active Substance: HEPARIN SODIUM
     Dosage: 6?HOUR
  3. ALTEPLASE. [Suspect]
     Active Substance: ALTEPLASE
     Dosage: 25 MG OVER 25 HOURS
  4. ALTEPLASE. [Suspect]
     Active Substance: ALTEPLASE
     Indication: AORTIC THROMBOSIS
     Dosage: FOR 25 HOURS

REACTIONS (2)
  - Contusion [Recovered/Resolved]
  - Peripheral swelling [Recovered/Resolved]
